FAERS Safety Report 4442043-8 (Version None)
Quarter: 2004Q3

REPORT INFORMATION
  Report Type: 
  Country: None (occurrence: None)
  Receive Date: 20040901
  Receipt Date: 20040819
  Transmission Date: 20050211
  Serious: Yes (Hospitalization, Other)
  Sender: FDA-Public Use
  Company Number: 2004058232

PATIENT
  Sex: Male
  Weight: 71.6683 kg

DRUGS (22)
  1. DIFLUCAN [Suspect]
     Indication: ORAL CANDIDIASIS
     Dosage: 400 MG (200 MG, 2 IN 1 D) , ORAL
     Route: 048
  2. VFEND [Suspect]
     Indication: ORAL CANDIDIASIS
     Dosage: 400 MG (200 MG, 2 IN 1 D), ORAL
     Route: 048
     Dates: start: 20040101, end: 20040801
  3. METHADONE HCL [Suspect]
     Indication: PAIN
     Dosage: 40 MG (20 MG, 2 IN 1 D), ORAL
     Route: 048
  4. RITONAVIR [Suspect]
     Indication: ACQUIRED IMMUNODEFICIENCY SYNDROME
     Dosage: 100 MG (100 MG, 1 IN 1 D), ORAL
     Route: 048
     Dates: end: 20040101
  5. ITRACONAZOLE [Suspect]
     Indication: ILL-DEFINED DISORDER
     Dosage: (1 D)
  6. METOPROLOL SUCCINATE [Concomitant]
  7. ALPRAZOLAM [Concomitant]
  8. LOMOTIL [Concomitant]
  9. TENOFOVIR DISOPROXIL FUMARATE [Concomitant]
  10. FAMCICLOVIR [Concomitant]
  11. ACETYLSALICYLIC ACID [Concomitant]
  12. ATAZANAVIR SULFATE [Concomitant]
  13. LANSOPRAZOLE [Concomitant]
  14. ESCITALOPRAM OXALATE [Concomitant]
  15. CLONIDINE HCL [Concomitant]
  16. ZIDOVUDINE W/LAMIVUDINE (LAMIVUDINE, ZIDOVUDINE) [Concomitant]
  17. MONTELUKAST [Concomitant]
  18. BACTRIM [Concomitant]
  19. NANDROLONE DECANOATE [Concomitant]
  20. TESTOSTERONE [Concomitant]
  21. CYANOCOBALAMIN [Concomitant]
  22. SULFADIAZINE [Concomitant]

REACTIONS (14)
  - BOWEN'S DISEASE [None]
  - CARDIAC OPERATION [None]
  - COMA [None]
  - CONVULSION [None]
  - DEPRESSED LEVEL OF CONSCIOUSNESS [None]
  - DRUG INEFFECTIVE [None]
  - DRUG INTERACTION [None]
  - EMPYEMA [None]
  - MUSCULOSKELETAL STIFFNESS [None]
  - ORAL CANDIDIASIS [None]
  - PATHOGEN RESISTANCE [None]
  - STAPHYLOCOCCAL INFECTION [None]
  - SYNCOPE [None]
  - THORACIC OPERATION [None]
